FAERS Safety Report 7965787-X (Version None)
Quarter: 2011Q4

REPORT INFORMATION
  Report Type: 
  Country: None (occurrence: None)
  Receive Date: 20111208
  Receipt Date: 20111201
  Transmission Date: 20120403
  Serious: Yes (Other)
  Sender: FDA-Public Use
  Company Number: US-ABBOTT-11P-163-0734712-00

PATIENT
  Sex: Female
  Weight: 65.83 kg

DRUGS (8)
  1. HUMIRA [Suspect]
     Route: 058
     Dates: start: 20060101, end: 20091201
  2. COQ10 [Concomitant]
     Indication: SUPPLEMENTATION THERAPY
     Route: 048
  3. LEVOTHYROXINE SODIUM [Concomitant]
     Indication: HYPOTHYROIDISM
     Route: 048
  4. HUMIRA [Suspect]
     Indication: PSORIATIC ARTHROPATHY
     Route: 058
     Dates: start: 20060101, end: 20060101
  5. WOMEN'S VITAMIN [Concomitant]
     Indication: CARDIAC DISORDER
     Route: 048
  6. GLUCOSAMINE SULFATE [Concomitant]
     Indication: PSORIATIC ARTHROPATHY
     Route: 048
  7. HUMIRA [Suspect]
     Route: 058
     Dates: start: 20110101
  8. ETIRACETAM [Concomitant]
     Indication: CONVULSION

REACTIONS (10)
  - DRUG INEFFECTIVE [None]
  - MEMORY IMPAIRMENT [None]
  - PSORIASIS [None]
  - ARTHRITIS [None]
  - PAIN IN EXTREMITY [None]
  - CONVULSION [None]
  - CEREBROVASCULAR ACCIDENT [None]
  - LOCALISED INFECTION [None]
  - ARTHRALGIA [None]
  - OEDEMA PERIPHERAL [None]
